FAERS Safety Report 4752924-3 (Version None)
Quarter: 2005Q3

REPORT INFORMATION
  Report Type: 
  Country: None (occurrence: None)
  Receive Date: 20050823
  Receipt Date: 20050705
  Transmission Date: 20060218
  Serious: Yes (Hospitalization)
  Sender: FDA-Public Use
  Company Number: US-JNJFOC-20050701324

PATIENT
  Age: 41 Year
  Sex: Female

DRUGS (2)
  1. RISPERDAL [Suspect]
     Indication: BIPOLAR DISORDER
     Dosage: 50 MG, INTRA-MUSCULAR
     Route: 030
  2. RISPERDAL [Suspect]
     Indication: SCHIZOPHRENIA
     Dosage: 50 MG, INTRA-MUSCULAR
     Route: 030

REACTIONS (2)
  - TACHYCARDIA [None]
  - TARDIVE DYSKINESIA [None]
